FAERS Safety Report 4435833-9 (Version None)
Quarter: 2004Q3

REPORT INFORMATION
  Report Type: 
  Country: None (occurrence: None)
  Receive Date: 20040826
  Receipt Date: 20040816
  Transmission Date: 20050211
  Serious: Yes (Other)
  Sender: FDA-Public Use
  Company Number: HQWYE171702JUN04

PATIENT
  Age: 68 Year
  Sex: Male
  Weight: 97.61 kg

DRUGS (22)
  1. RAPAMUNE [Suspect]
     Indication: PROPHYLAXIS AGAINST TRANSPLANT REJECTION
     Dosage: 1 MG 1X PER 1 DAY,
     Dates: start: 20020626
  2. MYCOPHENOLATE MOFETIL (MYCOPHENOLATE MOFETIL) [Concomitant]
  3. PREDNISONE TAB [Concomitant]
  4. COREG [Concomitant]
  5. COREG [Concomitant]
  6. ACETYLSALICYLIC ACID ENTERIC COATED (ACETYLSALICYLIC ACID) [Concomitant]
  7. PRILOSEC [Concomitant]
  8. MULTIVITAMINS (ASCORBIC ACID/ERGOCALCIFEROL/FOLIC ACID/NICOTANAMIDE/PA [Concomitant]
  9. FLOVENT [Concomitant]
  10. ISORDIL [Concomitant]
  11. SEREVENT [Concomitant]
  12. LANOXIN [Concomitant]
  13. CALCIUM WITH VITAMIN D (CALCIUM PHOSPHATE/CALCIUM SODIUM LACTATE/ERGOC [Concomitant]
  14. TRIAZOLAM [Concomitant]
  15. POTASSIUM (POTASSIUM) [Concomitant]
  16. GUAIFENESIN (GUAIFENESIN) [Concomitant]
  17. RETINOL (RETINOL) [Concomitant]
  18. ALDACTONE [Concomitant]
  19. COMBIVENT [Concomitant]
  20. TYLENOL [Concomitant]
  21. LASIX [Concomitant]
  22. ZAROXOLYN [Concomitant]

REACTIONS (2)
  - SQUAMOUS CELL CARCINOMA [None]
  - TONGUE NEOPLASM MALIGNANT STAGE UNSPECIFIED [None]
